FAERS Safety Report 5526165-6 (Version None)
Quarter: 2007Q4

REPORT INFORMATION
  Report Type: 
  Country: None (occurrence: None)
  Receive Date: 20071120
  Receipt Date: 20071105
  Transmission Date: 20080405
  Serious: Yes (Other)
  Sender: FDA-Public Use
  Company Number: 310003N07JPN

PATIENT
  Age: 18 Year
  Sex: Male
  Weight: 70 kg

DRUGS (5)
  1. GONAL-F [Suspect]
     Indication: HYPOGONADISM MALE
     Dosage: 75, 1 IN 1 WEEKS, SUBCUTANEOUS
     Route: 058
     Dates: start: 20070402
  2. PROFASI (CHORIONIC GONADOTROPIN OR INJECTION, USP) (CHORIONIC GONADOTR [Suspect]
     Indication: HYPOGONADISM MALE
     Dosage: 2000, 2 IN 1 WEEKS, SUBCUTANEOUS
     Route: 058
     Dates: start: 20070402
  3. COTRIL (HYDROCORTISONE) [Concomitant]
  4. LEVOTHYROXINE SODIUM [Concomitant]
  5. DESMOPRESSIN ACETATE [Concomitant]

REACTIONS (3)
  - ASTHMA [None]
  - HEADACHE [None]
  - NAUSEA [None]
